FAERS Safety Report 9776778 (Version 2)
Quarter: 2014Q1

REPORT INFORMATION
  Report Type: Report from Study
  Country: DE (occurrence: DE)
  Receive Date: 20131220
  Receipt Date: 20140211
  Transmission Date: 20141002
  Serious: Yes (Hospitalization)
  Sender: FDA-Public Use
  Company Number: DE-UCBSA-106218

PATIENT
  Sex: Female

DRUGS (3)
  1. CERTOLIZUMAB PEGOL [Suspect]
     Indication: RHEUMATOID ARTHRITIS
     Dates: start: 200912
  2. CERTOLIZUMAB PEGOL [Suspect]
     Indication: RHEUMATOID ARTHRITIS
     Dates: end: 20130304
  3. METHOTREXATE [Suspect]
     Dosage: 15 MG/WEEK; WITH INTERRUPTIONS
     Dates: start: 200906

REACTIONS (1)
  - Pyelonephritis [Recovered/Resolved]
